FAERS Safety Report 9097047 (Version 1)
Quarter: 2013Q1

REPORT INFORMATION
  Report Type: Spontaneous
  Country: CN (occurrence: None)
  Receive Date: 20130123
  Receipt Date: 20130123
  Transmission Date: 20140127
  Serious: Yes (Other)
  Sender: FDA-Public Use
  Company Number: PD 177

PATIENT
  Age: 10 Month
  Sex: Female
  Weight: 9 kg

DRUGS (1)
  1. LEVETIRACETAM [Suspect]
     Route: 048

REACTIONS (4)
  - Blood alkaline phosphatase increased [None]
  - Blood creatine phosphokinase MB increased [None]
  - Blood lactate dehydrogenase increased [None]
  - Hepatic function abnormal [None]
